FAERS Safety Report 10643637 (Version 2)
Quarter: 2014Q4

REPORT INFORMATION
  Report Type: Spontaneous
  Country: US (occurrence: US)
  Receive Date: 20141210
  Receipt Date: 20141210
  Transmission Date: 20150529
  Serious: No
  Sender: FDA-Public Use
  Company Number: US-ENDO PHARMACEUTICALS INC.-AVEE20140217

PATIENT
  Age: 55 Year
  Sex: Male
  Weight: 87.53 kg

DRUGS (5)
  1. AVEED [Suspect]
     Active Substance: TESTOSTERONE UNDECANOATE
     Dosage: UNKNOWN
     Route: 065
     Dates: start: 201406, end: 201406
  2. OMEPRAZOLE. [Concomitant]
     Active Substance: OMEPRAZOLE
     Indication: DYSPEPSIA
     Route: 065
  3. AVEED [Suspect]
     Active Substance: TESTOSTERONE UNDECANOATE
     Dosage: UNKNOWN
     Route: 065
     Dates: start: 2014, end: 201406
  4. AVEED [Suspect]
     Active Substance: TESTOSTERONE UNDECANOATE
     Indication: PRODUCT USED FOR UNKNOWN INDICATION
     Dosage: UNKNOWN
     Route: 065
     Dates: start: 20140922, end: 201409
  5. CIALIS [Concomitant]
     Active Substance: TADALAFIL
     Indication: BENIGN PROSTATIC HYPERPLASIA
     Route: 065
     Dates: start: 20140423

REACTIONS (3)
  - Drug ineffective [Unknown]
  - Alanine aminotransferase increased [Unknown]
  - Cough [Unknown]

NARRATIVE: CASE EVENT DATE: 2014
